FAERS Safety Report 8588708-8 (Version None)
Quarter: 2012Q3

REPORT INFORMATION
  Report Type: 
  Country: None (occurrence: None)
  Receive Date: 20120813
  Receipt Date: 20120810
  Transmission Date: 20120928
  Serious: Yes (Hospitalization)
  Sender: FDA-Public Use
  Company Number: PHHY2012ES069282

PATIENT
  Age: 75 Year
  Sex: Female

DRUGS (1)
  1. EXELON [Suspect]
     Indication: DEMENTIA
     Dosage: 9.5 MG, DAILY
     Route: 062
     Dates: start: 20081209, end: 20120601

REACTIONS (3)
  - ATRIOVENTRICULAR BLOCK COMPLETE [None]
  - DYSKINESIA [None]
  - EXTRAPYRAMIDAL DISORDER [None]
